FAERS Safety Report 5812466-0 (Version None)
Quarter: 2008Q3

REPORT INFORMATION
  Report Type: 
  Country: None (occurrence: None)
  Receive Date: 20080716
  Receipt Date: 20080716
  Transmission Date: 20090109
  Serious: Yes (Life-Threatening)
  Sender: FDA-Public Use
  Company Number: None

PATIENT
  Sex: Female
  Weight: 106.5953 kg

DRUGS (2)
  1. NOVOLOG [Suspect]
     Indication: DIABETES MELLITUS
     Dosage: 70/30 - 30 UNITS 2 - DIALY BELLY
     Dates: start: 20071201, end: 20080601
  2. NORVASC [Suspect]
     Indication: BLOOD PRESSURE INCREASED
     Dosage: 5 MG ONE DAILY BY MOUTH
     Route: 048
     Dates: start: 20080530, end: 20080601

REACTIONS (1)
  - BLOOD GLUCOSE DECREASED [None]
